FAERS Safety Report 6108950-5 (Version None)
Quarter: 2009Q1

REPORT INFORMATION
  Report Type: 
  Country: None (occurrence: None)
  Receive Date: 20090310
  Receipt Date: 20090224
  Transmission Date: 20090719
  Serious: Yes (Hospitalization)
  Sender: FDA-Public Use
  Company Number: JP-ELI_LILLY_AND_COMPANY-JP200903000529

PATIENT
  Age: 98 Year
  Sex: Female

DRUGS (1)
  1. EVISTA [Suspect]
     Route: 048

REACTIONS (1)
  - FRACTURE [None]
